FAERS Safety Report 6286907-1 (Version None)
Quarter: 2009Q3

REPORT INFORMATION
  Report Type: 
  Country: None (occurrence: None)
  Receive Date: 20090724
  Receipt Date: 20090710
  Transmission Date: 20100115
  Serious: Yes (Hospitalization)
  Sender: FDA-Public Use
  Company Number: CIP09001914

PATIENT
  Age: 76 Year
  Sex: Female

DRUGS (21)
  1. RISEDRONATE SODIUM [Suspect]
     Indication: OSTEOPOROSIS
     Dosage: 17.5 MG ONCE WEEKLY, ORAL
     Route: 048
     Dates: start: 20081121, end: 20090213
  2. VOLTAREN [Concomitant]
  3. ELCITONIN (ELCATONIN) [Concomitant]
  4. LASIX [Concomitant]
  5. AMLODIPINE BESYLATE [Concomitant]
  6. DIOVAN [Concomitant]
  7. EBRANTIL (URAPIDIL) [Concomitant]
  8. DIOVAN [Concomitant]
  9. EBRANTIL (URAPIDIL) [Concomitant]
  10. EVAMYL (LORMETAZEPAM) [Concomitant]
  11. GLUCOBAY [Concomitant]
  12. EURAX [Concomitant]
  13. FERROMIA (FERROUS CITRATE) [Concomitant]
  14. CORINAEL (NIFEDIPINE) [Concomitant]
  15. ANPLAG (SARPOGRELATE HYDROCHLORIDE) [Concomitant]
  16. PROCYLIN (BERAPROST SODIUM) [Concomitant]
  17. PLETAL [Concomitant]
  18. MAGMITT (MAGNESIUM OXIDE) [Concomitant]
  19. LAC B (LACTOBACILLUS BIFIDS, LYOPHYLLIZED) [Concomitant]
  20. AMARYL [Concomitant]
  21. METHYLSALICYLATE (METHYL SALICYKATE [Concomitant]

REACTIONS (8)
  - CARDIAC FAILURE [None]
  - CONDITION AGGRAVATED [None]
  - FATIGUE [None]
  - GAIT DISTURBANCE [None]
  - GENERALISED OEDEMA [None]
  - HAEMODIALYSIS [None]
  - KNEE ARTHROPLASTY [None]
  - MALAISE [None]
